FAERS Safety Report 4551447-4 (Version None)
Quarter: 2005Q1

REPORT INFORMATION
  Report Type: 
  Country: None (occurrence: None)
  Receive Date: 20050105
  Receipt Date: 20041223
  Transmission Date: 20050727
  Serious: Yes (Other)
  Sender: FDA-Public Use
  Company Number: 200410936BCA

PATIENT
  Sex: Female

DRUGS (2)
  1. GAMIMUNE N 10% [Suspect]
     Indication: THROMBOCYTOPENIA
     Dosage: 30 MG, BID, INTRAVENOUS
     Route: 042
     Dates: start: 20041220, end: 20041221
  2. LOSEC /CAN/ [Concomitant]

REACTIONS (3)
  - BLOOD PRESSURE DECREASED [None]
  - CHEST DISCOMFORT [None]
  - HEART RATE DECREASED [None]
